FAERS Safety Report 15776679 (Version 1)
Quarter: 2018Q4

REPORT INFORMATION
  Report Type: Spontaneous
  Country: US (occurrence: US)
  Receive Date: 20181231
  Receipt Date: 20181231
  Transmission Date: 20190205
  Serious: No
  Sender: FDA-Public Use
  Company Number: US-PFIZER INC-2018532487

PATIENT
  Age: 30 Year
  Sex: Male

DRUGS (1)
  1. SOMAVERT [Suspect]
     Active Substance: PEGVISOMANT
     Dosage: 20 MG, DAILY

REACTIONS (8)
  - Insulin-like growth factor increased [Unknown]
  - Arthralgia [Unknown]
  - Blood testosterone decreased [Unknown]
  - Bone densitometry [Unknown]
  - Soft tissue swelling [Unknown]
  - Headache [Unknown]
  - Insulin-like growth factor increased [Unknown]
  - Bone densitometry [Unknown]

NARRATIVE: CASE EVENT DATE: 20180505
